FAERS Safety Report 8110305-9 (Version None)
Quarter: 2012Q1

REPORT INFORMATION
  Report Type: 
  Country: None (occurrence: None)
  Receive Date: 20120202
  Receipt Date: 20120125
  Transmission Date: 20120608
  Serious: Yes (Other)
  Sender: FDA-Public Use
  Company Number: PHHY2012US006751

PATIENT
  Age: 59 Year
  Sex: Female

DRUGS (8)
  1. TACROLIMUS [Suspect]
     Indication: TRANSPLANT REJECTION
     Dosage: 2 MG, QD
     Route: 048
  2. PANTOPRAZOLE [Concomitant]
  3. FLUTICASONE PROPIONATE [Concomitant]
  4. DARBEPOETIN ALFA [Concomitant]
  5. URSODIOL [Concomitant]
  6. MAGNESIUM GLUCONATE [Concomitant]
  7. LACTULOSE [Concomitant]
  8. FERROUS SULFATE TAB [Concomitant]

REACTIONS (3)
  - CEREBRAL SMALL VESSEL ISCHAEMIC DISEASE [None]
  - MUTISM [None]
  - DYSARTHRIA [None]
